FAERS Safety Report 10622987 (Version 1)
Quarter: 2014Q4

REPORT INFORMATION
  Report Type: Spontaneous
  Country: BR (occurrence: BR)
  Receive Date: 20141203
  Receipt Date: 20141203
  Transmission Date: 20150529
  Serious: Yes (Other)
  Sender: FDA-Public Use
  Company Number: BR-009507513-1412BRA001018

PATIENT
  Age: 54 Year
  Sex: Female

DRUGS (1)
  1. JANUVIA [Suspect]
     Active Substance: SITAGLIPTIN PHOSPHATE
     Dosage: UNK UNK, QD
     Route: 048
     Dates: start: 201406

REACTIONS (1)
  - Gastric operation [Unknown]

NARRATIVE: CASE EVENT DATE: 2014
